FAERS Safety Report 20049515 (Version 6)
Quarter: 2022Q3

REPORT INFORMATION
  Report Type: Report from Study
  Country: BR (occurrence: BR)
  Receive Date: 20211109
  Receipt Date: 20220811
  Transmission Date: 20221027
  Serious: Yes (Hospitalization, Other)
  Sender: FDA-Public Use
  Company Number: BR-TAKEDA-2021TUS065199

PATIENT
  Age: 11 Year
  Sex: Male
  Weight: 40 kg

DRUGS (4)
  1. IDURSULFASE [Suspect]
     Active Substance: IDURSULFASE
     Indication: Mucopolysaccharidosis II
     Dosage: UNK
     Route: 042
  2. IDURSULFASE [Suspect]
     Active Substance: IDURSULFASE
     Dosage: UNK, 1/WEEK
     Route: 065
  3. IDURSULFASE [Suspect]
     Active Substance: IDURSULFASE
     Dosage: 4 DOSAGE FORM, 1/WEEK
     Route: 050
     Dates: start: 201110
  4. IDURSULFASE [Suspect]
     Active Substance: IDURSULFASE
     Dosage: UNK
     Route: 065

REACTIONS (19)
  - Lung opacity [Unknown]
  - Bronchospasm [Unknown]
  - Asthma [Recovered/Resolved]
  - Generalised oedema [Recovering/Resolving]
  - Pulmonary oedema [Recovering/Resolving]
  - Pneumonia [Unknown]
  - Aortic stenosis [Recovering/Resolving]
  - Laryngeal stenosis [Unknown]
  - Type 1 diabetes mellitus [Unknown]
  - Poor venous access [Not Recovered/Not Resolved]
  - Illness [Unknown]
  - Oxygen saturation decreased [Unknown]
  - Laryngitis [Unknown]
  - Atelectasis [Unknown]
  - Sleep apnoea syndrome [Unknown]
  - Pyrexia [Unknown]
  - Cough [Unknown]
  - Musculoskeletal stiffness [Unknown]
  - Mitral valve prolapse [Recovering/Resolving]

NARRATIVE: CASE EVENT DATE: 20211001
